FAERS Safety Report 4351745-3 (Version None)
Quarter: 2004Q2

REPORT INFORMATION
  Report Type: 
  Country: None (occurrence: None)
  Receive Date: 20040429
  Receipt Date: 20040302
  Transmission Date: 20050107
  Serious: No
  Sender: FDA-Public Use
  Company Number: 2004-113814-NL

PATIENT
  Age: 37 Year
  Sex: Female
  Weight: 91 kg

DRUGS (6)
  1. NUVARING [Suspect]
     Indication: AMENORRHOEA
     Dosage: DF DAILY VAGINAL
     Route: 067
     Dates: start: 20040102
  2. BENADRYL [Concomitant]
  3. ALLEGRA [Concomitant]
  4. CELEBREX [Concomitant]
  5. HYDROCODONE WITH IBUPROFEN [Concomitant]
  6. UNKNOWN MUSCLE RELAXAER [Concomitant]

REACTIONS (3)
  - ABDOMINAL PAIN [None]
  - MEDICAL DEVICE CHANGE [None]
  - MENOMETRORRHAGIA [None]
